FAERS Safety Report 5166612-5 (Version None)
Quarter: 2006Q4

REPORT INFORMATION
  Report Type: 
  Country: None (occurrence: None)
  Receive Date: 20061201
  Receipt Date: 20061201
  Transmission Date: 20070319
  Serious: Yes (Death, Hospitalization)
  Sender: FDA-Public Use
  Company Number: None

PATIENT
  Age: 85 Year
  Sex: Male
  Weight: 53 kg

DRUGS (4)
  1. CYCLOPHOSPHAMIDE [Suspect]
     Indication: NON-SMALL CELL LUNG CANCER STAGE IV
     Dosage: SEE INITIAL REPORT
  2. ALLOGENEIC LUNG CA/CD40L VACCINE [Suspect]
     Indication: METASTASES TO LIVER
     Dosage: SEE INITIAL REPORT
  3. ALL-TRANS RETINOIC ACID (ATRA) [Suspect]
     Indication: METASTASES TO LIVER
     Dosage: SEE INITIAL REPORT
  4. ALL-TRANS RETINOIC ACID (ATRA) [Suspect]
     Indication: NON-SMALL CELL LUNG CANCER STAGE IV
     Dosage: SEE INITIAL REPORT

REACTIONS (25)
  - ASPIRATION [None]
  - BLOOD POTASSIUM DECREASED [None]
  - BREATH SOUNDS ABNORMAL [None]
  - CANCER PAIN [None]
  - DEHYDRATION [None]
  - DYSPHAGIA [None]
  - FATIGUE [None]
  - GENERAL PHYSICAL HEALTH DETERIORATION [None]
  - HAEMOGLOBIN DECREASED [None]
  - HYDROPNEUMOTHORAX [None]
  - HYPOALBUMINAEMIA [None]
  - HYPOCALCAEMIA [None]
  - HYPOTENSION [None]
  - HYPOXIA [None]
  - ORAL INTAKE REDUCED [None]
  - PITTING OEDEMA [None]
  - PLEURAL EFFUSION [None]
  - PNEUMONIA [None]
  - PNEUMONIA ASPIRATION [None]
  - REFUSAL OF TREATMENT BY RELATIVE [None]
  - RENAL FAILURE ACUTE [None]
  - RESPIRATORY DISORDER [None]
  - RESPIRATORY DISTRESS [None]
  - TACHYCARDIA [None]
  - THERAPY NON-RESPONDER [None]
